FAERS Safety Report 9354567 (Version 2)
Quarter: 2013Q4

REPORT INFORMATION
  Report Type: Spontaneous
  Country: US (occurrence: US)
  Receive Date: 20130618
  Receipt Date: 20131007
  Transmission Date: 20140711
  Serious: Yes (Other)
  Sender: FDA-Public Use
  Company Number: US-FRI-1000046019

PATIENT
  Age: 32 Year
  Sex: Female

DRUGS (7)
  1. VIIBRYD [Suspect]
     Indication: DEPRESSION
     Dosage: 10 MG
     Route: 048
     Dates: start: 20130425, end: 20130501
  2. VIIBRYD [Suspect]
     Indication: ANXIETY
     Dosage: 20 MG
     Route: 048
     Dates: start: 20130502, end: 20130508
  3. VIIBRYD [Suspect]
     Indication: DEPRESSION
     Dosage: 40 MG
     Route: 048
     Dates: start: 20130509, end: 2013
  4. VIIBRYD [Suspect]
     Indication: ANXIETY
     Dates: start: 2013, end: 2013
  5. ATENOLOL [Concomitant]
     Indication: TACHYCARDIA
     Dosage: 50 MG
  6. ASPIRIN [Concomitant]
     Indication: COAGULOPATHY
  7. VITAMIN D [Concomitant]

REACTIONS (1)
  - Supraventricular tachycardia [Recovered/Resolved]
